FAERS Safety Report 4641666-0 (Version None)
Quarter: 2005Q2

REPORT INFORMATION
  Report Type: 
  Country: None (occurrence: None)
  Receive Date: 20050420
  Receipt Date: 20050408
  Transmission Date: 20051028
  Serious: Yes (Death, Hospitalization)
  Sender: FDA-Public Use
  Company Number: 05P-056-0294551-00

PATIENT
  Age: 54 Year
  Sex: Female
  Weight: 91 kg

DRUGS (3)
  1. TRICOR [Suspect]
     Indication: LIPID METABOLISM DISORDER
     Dosage: 200 MG, 1 IN 1 D, ORAL
     Route: 048
     Dates: end: 20050226
  2. ABILIFY [Concomitant]
  3. RISPERIDONE [Concomitant]

REACTIONS (8)
  - BLOOD CREATINE PHOSPHOKINASE INCREASED [None]
  - CARDIO-RESPIRATORY ARREST [None]
  - DEPRESSION [None]
  - ELECTROCARDIOGRAM ST SEGMENT ELEVATION [None]
  - FALL [None]
  - HYPERKALAEMIA [None]
  - MALAISE [None]
  - PSYCHOMOTOR HYPERACTIVITY [None]
